FAERS Safety Report 23819251 (Version 1)
Quarter: 2024Q2

REPORT INFORMATION
  Report Type: Spontaneous
  Country: TR (occurrence: TR)
  Receive Date: 20240506
  Receipt Date: 20240506
  Transmission Date: 20240716
  Serious: Yes (Other)
  Sender: FDA-Public Use
  Company Number: TR-AMGEN-TURSP2024085944

PATIENT
  Age: 65 Year
  Sex: Male

DRUGS (1)
  1. BEVACIZUMAB [Suspect]
     Active Substance: BEVACIZUMAB
     Indication: Diabetic retinal oedema
     Dosage: UNK

REACTIONS (6)
  - Bacterial endophthalmitis [Unknown]
  - Cataract nuclear [Unknown]
  - Iris adhesions [Unknown]
  - Hypopyon [Unknown]
  - Incorrect route of product administration [Unknown]
  - Off label use [Unknown]
